FAERS Safety Report 13097562 (Version 1)
Quarter: 2017Q1

REPORT INFORMATION
  Report Type: Spontaneous
  Country: None (occurrence: US)
  Receive Date: 20170107
  Receipt Date: 20170107
  Transmission Date: 20170428
  Serious: Yes (Death)
  Sender: FDA-Public Use
  Company Number: None

PATIENT
  Age: 4 Year
  Sex: Female
  Weight: 19.2 kg

DRUGS (3)
  1. VINCRISTINE SULFATE. [Suspect]
     Active Substance: VINCRISTINE SULFATE
     Dates: end: 20161231
  2. DEXAMETHASONE. [Suspect]
     Active Substance: DEXAMETHASONE
     Dates: end: 20170105
  3. ONCASPAR [Suspect]
     Active Substance: PEGASPARGASE
     Dates: end: 20161213

REACTIONS (4)
  - Respiratory distress [None]
  - Hypotension [None]
  - Respiratory syncytial virus test positive [None]
  - Condition aggravated [None]

NARRATIVE: CASE EVENT DATE: 20161211
